FAERS Safety Report 19012188 (Version 1)
Quarter: 2021Q1

REPORT INFORMATION
  Report Type: Spontaneous
  Country: US (occurrence: US)
  Receive Date: 20210315
  Receipt Date: 20210315
  Transmission Date: 20210420
  Serious: No
  Sender: FDA-Public Use
  Company Number: None

PATIENT
  Age: 72 Year
  Sex: Female

DRUGS (1)
  1. GENTAMICIN SULF MDV (2ML) [Suspect]
     Active Substance: GENTAMICIN SULFATE
     Indication: PSEUDOMONAS INFECTION
     Route: 055
     Dates: start: 20210126, end: 20210128

REACTIONS (4)
  - Abdominal pain upper [None]
  - Dizziness [None]
  - Cognitive disorder [None]
  - Diarrhoea [None]

NARRATIVE: CASE EVENT DATE: 20210126
